FAERS Safety Report 4980468-2 (Version None)
Quarter: 2006Q2

REPORT INFORMATION
  Report Type: 
  Country: None (occurrence: None)
  Receive Date: 20060418
  Receipt Date: 20060405
  Transmission Date: 20061013
  Serious: Yes (Other)
  Sender: FDA-Public Use
  Company Number: 2006031522

PATIENT
  Sex: Female

DRUGS (2)
  1. NEURONTIN [Suspect]
     Indication: AFFECT LABILITY
     Dates: start: 19981208
  2. NEURONTIN [Suspect]
     Indication: PAIN
     Dates: start: 19981208

REACTIONS (6)
  - CONDITION AGGRAVATED [None]
  - DEPRESSION [None]
  - DRUG ABUSER [None]
  - OFF LABEL USE [None]
  - PAIN [None]
  - SUICIDAL IDEATION [None]
